FAERS Safety Report 6180858-9 (Version None)
Quarter: 2009Q2

REPORT INFORMATION
  Report Type: 
  Country: None (occurrence: None)
  Receive Date: 20090504
  Receipt Date: 20090504
  Transmission Date: 20091009
  Serious: Yes (Other)
  Sender: FDA-Public Use
  Company Number: None

PATIENT
  Age: 39 Year
  Sex: Female
  Weight: 80.7403 kg

DRUGS (2)
  1. MIRALAX [Suspect]
     Indication: ABDOMINAL DISTENSION
     Dosage: 1 PACKET ONCE PER DAY PO
     Route: 048
     Dates: start: 20090430, end: 20090501
  2. MIRALAX [Suspect]
     Indication: CONSTIPATION
     Dosage: 1 PACKET ONCE PER DAY PO
     Route: 048
     Dates: start: 20090430, end: 20090501

REACTIONS (2)
  - RASH [None]
  - URTICARIA [None]
